FAERS Safety Report 6166481-0 (Version None)
Quarter: 2009Q2

REPORT INFORMATION
  Report Type: 
  Country: None (occurrence: None)
  Receive Date: 20090422
  Receipt Date: 20090422
  Transmission Date: 20091009
  Serious: Yes (Other)
  Sender: FDA-Public Use
  Company Number: None

PATIENT
  Age: 29 Year
  Sex: Female
  Weight: 85.2762 kg

DRUGS (1)
  1. PREVACID [Suspect]
     Indication: GASTRITIS
     Dosage: 30 MG P.O. Q.D. PRN
     Route: 048

REACTIONS (2)
  - GENERALISED ERYTHEMA [None]
  - URTICARIA [None]
